FAERS Safety Report 8491833-3 (Version None)
Quarter: 2012Q3

REPORT INFORMATION
  Report Type: 
  Country: None (occurrence: None)
  Receive Date: 20120706
  Receipt Date: 20110616
  Transmission Date: 20120928
  Serious: No
  Sender: FDA-Public Use
  Company Number: US-GLAXOSMITHKLINE-A0931731A

PATIENT
  Age: 80 Year
  Sex: Female

DRUGS (3)
  1. FLOVENT [Suspect]
     Indication: ASTHMA
     Dosage: 2PUFF TWICE PER DAY
     Route: 055
     Dates: start: 20110518, end: 20110521
  2. PROAIR HFA [Concomitant]
  3. UNKNOWN MEDICATION [Concomitant]

REACTIONS (3)
  - THROAT IRRITATION [None]
  - OROPHARYNGEAL PAIN [None]
  - VOMITING [None]
